FAERS Safety Report 15224976 (Version 2)
Quarter: 2018Q3

REPORT INFORMATION
  Report Type: Spontaneous
  Country: AR (occurrence: AR)
  Receive Date: 20180801
  Receipt Date: 20180817
  Transmission Date: 20181010
  Serious: Yes (Other)
  Sender: FDA-Public Use
  Company Number: AR-ABBVIE-18K-007-2436200-00

PATIENT
  Age: 63 Year

DRUGS (1)
  1. VENETOCLAX. [Suspect]
     Active Substance: VENETOCLAX
     Indication: CHRONIC LYMPHOCYTIC LEUKAEMIA
     Route: 048
     Dates: start: 20180723

REACTIONS (4)
  - Chylothorax [Recovered/Resolved]
  - Weight decreased [Unknown]
  - Pleural effusion [Unknown]
  - Muscle mass [Unknown]

NARRATIVE: CASE EVENT DATE: 2018
